FAERS Safety Report 19922587 (Version 4)
Quarter: 2022Q3

REPORT INFORMATION
  Report Type: Report from Study
  Country: CN (occurrence: CN)
  Receive Date: 20211006
  Receipt Date: 20220803
  Transmission Date: 20221027
  Serious: Yes (Hospitalization)
  Sender: FDA-Public Use
  Company Number: CN-BRISTOL-MYERS SQUIBB COMPANY-BMS-2021-090650

PATIENT
  Age: 53 Year
  Sex: Male

DRUGS (1)
  1. NIVOLUMAB [Suspect]
     Active Substance: NIVOLUMAB
     Indication: Non-small cell lung cancer
     Dosage: 200 MILLIGRAM, Q2WK?200 MG Q3WK
     Route: 041
     Dates: start: 20210624

REACTIONS (7)
  - Platelet count decreased [Unknown]
  - Full blood count abnormal [Unknown]
  - Dysphonia [Unknown]
  - Discomfort [Unknown]
  - Abdominal pain upper [Unknown]
  - Hepatic function abnormal [Unknown]
  - Off label use [Unknown]

NARRATIVE: CASE EVENT DATE: 20211228
